FAERS Safety Report 21561856 (Version 2)
Quarter: 2023Q1

REPORT INFORMATION
  Report Type: Report from Study
  Country: US (occurrence: US)
  Receive Date: 20221107
  Receipt Date: 20230110
  Transmission Date: 20230418
  Serious: Yes (Hospitalization, Other)
  Sender: FDA-Public Use
  Company Number: US-ABBVIE-4189358

PATIENT
  Age: 68 Year
  Sex: Female
  Weight: 66.22 kg

DRUGS (2)
  1. HUMIRA [Suspect]
     Active Substance: ADALIMUMAB
     Indication: Crohn^s disease
     Dosage: CITRATE FREE?STRENGTH- 40 MILLIGRAM
     Route: 058
     Dates: start: 2019
  2. ECHINACEA ANGUSTIFOLIA\HERBALS [Suspect]
     Active Substance: ECHINACEA ANGUSTIFOLIA\HERBALS
     Indication: Product used for unknown indication

REACTIONS (4)
  - Appendicitis perforated [Recovered/Resolved]
  - Pancreatitis [Recovered/Resolved]
  - Dehydration [Recovered/Resolved]
  - Pain [Recovered/Resolved]

NARRATIVE: CASE EVENT DATE: 20211021
